FAERS Safety Report 5143664-X (Version None)
Quarter: 2006Q4

REPORT INFORMATION
  Report Type: 
  Country: None (occurrence: None)
  Receive Date: 20061103
  Receipt Date: 20061030
  Transmission Date: 20070319
  Serious: Yes (Death, Hospitalization)
  Sender: FDA-Public Use
  Company Number: ES-ROXANE LABORATORIES, INC-2006-BP-12711RO

PATIENT
  Age: 61 Year
  Sex: Female

DRUGS (5)
  1. METHADONE HCL [Suspect]
     Indication: BONE PAIN
  2. METHADONE HCL [Suspect]
  3. METHADONE HCL [Suspect]
  4. METHADONE HCL [Suspect]
  5. CARBAMAZEPINE [Suspect]
     Indication: NEURALGIA

REACTIONS (5)
  - DEATH [None]
  - DRUG EFFECT DECREASED [None]
  - DRUG INTERACTION [None]
  - LOSS OF CONSCIOUSNESS [None]
  - RESPIRATORY DEPRESSION [None]
